FAERS Safety Report 12345830 (Version 2)
Quarter: 2019Q3

REPORT INFORMATION
  Report Type: Spontaneous
  Country: MX (occurrence: MX)
  Receive Date: 20160509
  Receipt Date: 20190722
  Transmission Date: 20191004
  Serious: Yes (Hospitalization)
  Sender: FDA-Public Use
  Company Number: MX-ACCORD-040302

PATIENT
  Age: 17 Year
  Sex: Male

DRUGS (9)
  1. PREDNISONE. [Concomitant]
     Active Substance: PREDNISONE
  2. CHLORPHENAMINE/CHLORPHENAMINE MALEATE/CHLORPHENAMINE RESINATE/CHLORPHENAMINE TANNATE [Concomitant]
     Indication: PREMEDICATION
     Dosage: AT 13, 7 AND 1 HOUR PRIOR TO DESENSITIZATION
     Route: 042
  3. MONTELUKAST/MONTELUKAST SODIUM [Concomitant]
     Dosage: AT 13, 7 AND 1 HOUR PRIOR TO DESENSITIZATION
     Route: 048
  4. RANITIDINE. [Concomitant]
     Active Substance: RANITIDINE
     Dosage: LATER RECEIVED 300 MG IV AT 13, 7 AND 1 HOUR
  5. HYDROCORTISONE. [Concomitant]
     Active Substance: HYDROCORTISONE
     Indication: PREMEDICATION
     Dosage: AT 13, 7 AND 1 HOUR PRIOR TO DESENSITIZATION
     Route: 042
  6. METHOTREXATE. [Suspect]
     Active Substance: METHOTREXATE
     Indication: ACUTE LYMPHOCYTIC LEUKAEMIA
     Dosage: LATER RECEIVED INTRATHECALLY AND THEN INFUSION
     Route: 042
  7. CETIRIZINE [Concomitant]
     Active Substance: CETIRIZINE HYDROCHLORIDE
     Dosage: AT 13, 7 AND 1 HOUR PRIOR TO DESENSITIZATION
     Route: 048
  8. METHYLPREDNISOLONE. [Concomitant]
     Active Substance: METHYLPREDNISOLONE
     Dosage: ALSO RECEIVED 2 MG/KG/DAY INTRAVENOUS AFTERWARDS
  9. DIPHENHYDRAMINE. [Concomitant]
     Active Substance: DIPHENHYDRAMINE
     Route: 042

REACTIONS (2)
  - Anaphylactic reaction [Recovered/Resolved]
  - Anxiety [Recovered/Resolved]
